FAERS Safety Report 6896466-8 (Version None)
Quarter: 2010Q3

REPORT INFORMATION
  Report Type: 
  Country: None (occurrence: None)
  Receive Date: 20100802
  Receipt Date: 20090223
  Transmission Date: 20110219
  Serious: No
  Sender: FDA-Public Use
  Company Number: US-PFIZER INC-2009158312

PATIENT
  Sex: Female
  Weight: 62.1 kg

DRUGS (3)
  1. ANTIVERT [Suspect]
     Indication: VERTIGO
     Dosage: 12.5 MG, 2X/DAY
     Route: 048
     Dates: start: 20090101
  2. LORAZEPAM [Concomitant]
     Dosage: UNK
  3. ACTOS [Concomitant]
     Dosage: UNK

REACTIONS (3)
  - DIZZINESS [None]
  - NAUSEA [None]
  - SOMNOLENCE [None]
